FAERS Safety Report 4576218-4 (Version None)
Quarter: 2005Q1

REPORT INFORMATION
  Report Type: 
  Country: None (occurrence: None)
  Receive Date: 20050207
  Receipt Date: 20050127
  Transmission Date: 20050727
  Serious: Yes (Hospitalization)
  Sender: FDA-Public Use
  Company Number: K200500152

PATIENT
  Sex: Male

DRUGS (5)
  1. KEMADRIN [Suspect]
     Dosage: SEE IMAGE
  2. STELAZINE (TRIFLUOPERAZINE HYDROCHLORIDE) 10-5MG [Suspect]
     Indication: BIPOLAR DISORDER
     Dosage: 10-5 MG, BID, ORAL
     Route: 048
  3. DOTHIEPIN (DOSULEPIN) 150-75MG [Suspect]
     Indication: BIPOLAR DISORDER
     Dosage: 150-75 MG QHS, ORAL
     Route: 048
  4. MORPHINE (MORPHINE) 30MG [Suspect]
     Dosage: 30 MG, BID
     Dates: end: 20041206
  5. CARBAMAZEPINE (CARBAMAZEPINE) 200MG [Suspect]
     Dosage: 200 MG, BIDD

REACTIONS (2)
  - SEDATION [None]
  - SOMNOLENCE [None]
